FAERS Safety Report 8121230 (Version 7)
Quarter: 2015Q2

REPORT INFORMATION
  Report Type: Report from Study
  Country: CA (occurrence: CA)
  Receive Date: 20110906
  Receipt Date: 20150609
  Transmission Date: 20150821
  Serious: Yes (Hospitalization, Other)
  Sender: FDA-Public Use
  Company Number: PHHY2011CA77903

PATIENT
  Age: 61 Year
  Sex: Female

DRUGS (3)
  1. SANDOSTATIN LAR DEPOT [Suspect]
     Active Substance: OCTREOTIDE ACETATE
     Dosage: 30 MG, EVERY 2 WEEKS
     Route: 030
  2. SANDOSTATIN LAR DEPOT [Suspect]
     Active Substance: OCTREOTIDE ACETATE
     Dosage: 30 MG, EVERY THREE WEEKS
     Route: 030
  3. SANDOSTATIN LAR DEPOT [Suspect]
     Active Substance: OCTREOTIDE ACETATE
     Indication: NEUROENDOCRINE TUMOUR
     Dosage: 30 MG, QMO
     Route: 030
     Dates: start: 20110823

REACTIONS (18)
  - Depression [Unknown]
  - Vomiting [Unknown]
  - Pancreatitis [Unknown]
  - Headache [Unknown]
  - Abdominal pain [Unknown]
  - Palpitations [Unknown]
  - Feeling abnormal [Unknown]
  - Nausea [Unknown]
  - Cold sweat [Unknown]
  - Malaise [Unknown]
  - Tremor [Unknown]
  - Fatigue [Unknown]
  - Blood pressure increased [Unknown]
  - Blood pressure diastolic increased [Unknown]
  - Heart rate decreased [Unknown]
  - Pain [Unknown]
  - Anxiety [Unknown]
  - Flushing [Unknown]

NARRATIVE: CASE EVENT DATE: 20131105
